FAERS Safety Report 18350468 (Version 1)
Quarter: 2020Q4

REPORT INFORMATION
  Report Type: Spontaneous
  Country: CZ (occurrence: CZ)
  Receive Date: 20201006
  Receipt Date: 20201006
  Transmission Date: 20210114
  Serious: Yes (Other)
  Sender: FDA-Public Use
  Company Number: CZ-MYLANLABS-2020M1084113

PATIENT
  Age: 19 Year
  Sex: Female

DRUGS (1)
  1. HULIO [Suspect]
     Active Substance: ADALIMUMAB-FKJP
     Indication: COLITIS ULCERATIVE
     Dosage: 160 MILLIGRAM
     Dates: end: 20200914

REACTIONS (1)
  - Drug ineffective [Unknown]
